FAERS Safety Report 14256165 (Version 16)
Quarter: 2020Q3

REPORT INFORMATION
  Report Type: Report from Study
  Country: US (occurrence: US)
  Receive Date: 20171206
  Receipt Date: 20200709
  Transmission Date: 20201102
  Serious: Yes (Death, Hospitalization, Other)
  Sender: FDA-Public Use
  Company Number: US-ACTELION-A-NJ2017-160191

PATIENT
  Age: 59 Year
  Sex: Male
  Weight: 93.88 kg

DRUGS (32)
  1. UPTRAVI [Suspect]
     Active Substance: SELEXIPAG
     Dosage: 1000 MCG, Q12HRS
     Route: 048
     Dates: start: 20160518
  2. KEPPRA [Concomitant]
     Active Substance: LEVETIRACETAM
     Dosage: 500 MG, QD
     Route: 048
     Dates: start: 20151118
  3. NOXAFIL [Concomitant]
     Active Substance: POSACONAZOLE
     Dosage: UNK
     Dates: start: 20161201
  4. ACETAMINOPHEN. [Concomitant]
     Active Substance: ACETAMINOPHEN
     Dosage: 325 MG, Q6HRS, PRN IFNEEDED
  5. LIDOCAINE. [Concomitant]
     Active Substance: LIDOCAINE
  6. UPTRAVI [Suspect]
     Active Substance: SELEXIPAG
     Dosage: 1000 MCG, BID
     Route: 048
     Dates: start: 20160116
  7. SILDENAFIL. [Suspect]
     Active Substance: SILDENAFIL
     Indication: PRODUCT USED FOR UNKNOWN INDICATION
     Dosage: 40 MG, TID
     Route: 048
     Dates: start: 20160726
  8. OMEPRAZOLE. [Concomitant]
     Active Substance: OMEPRAZOLE
     Dosage: 20 MG, QD
     Route: 048
     Dates: start: 20111103
  9. POSACONAZOLE [Concomitant]
     Active Substance: POSACONAZOLE
     Dosage: 300 MG, QD
  10. GUAIFENESIN. [Concomitant]
     Active Substance: GUAIFENESIN
     Dosage: 100 MG/5ML, PRN
  11. UPTRAVI [Suspect]
     Active Substance: SELEXIPAG
     Dosage: 1200 MCG, BID
     Route: 048
     Dates: start: 20181215
  12. TACROLIMUS. [Concomitant]
     Active Substance: TACROLIMUS
     Indication: PRODUCT USED FOR UNKNOWN INDICATION
  13. PREGABALIN. [Concomitant]
     Active Substance: PREGABALIN
     Dosage: TWO TABLETS (200MG) IN AM, 1 TABLET100 MG, IN PM
     Dates: start: 20150831
  14. FLONASE [Concomitant]
     Active Substance: FLUTICASONE PROPIONATE
     Dosage: 50 MCG, QD
     Route: 055
  15. AMLODIPINE [Concomitant]
     Active Substance: AMLODIPINE BESYLATE
  16. MULTIVITAMIN [Concomitant]
     Active Substance: VITAMINS
  17. FUROSEMIDE. [Concomitant]
     Active Substance: FUROSEMIDE
     Dosage: 80 MG, BID
     Route: 048
     Dates: start: 20170503
  18. LUCENTIS [Concomitant]
     Active Substance: RANIBIZUMAB
     Dosage: UNK
     Dates: start: 20160623
  19. ATROVENT [Concomitant]
     Active Substance: IPRATROPIUM BROMIDE
     Dosage: 17 MCG, QID
     Route: 055
  20. LIDODERM [Concomitant]
     Active Substance: LIDOCAINE
     Dosage: 5 %, UNK
     Route: 061
  21. METOLAZONE. [Concomitant]
     Active Substance: METOLAZONE
  22. FLOMAX [Concomitant]
     Active Substance: TAMSULOSIN HYDROCHLORIDE
     Dosage: 0.4 MG, QD
     Route: 048
     Dates: start: 20170503
  23. FLUTICASONE. [Concomitant]
     Active Substance: FLUTICASONE
  24. IPRATROPIUM [Concomitant]
     Active Substance: IPRATROPIUM
  25. TAMSULOSIN [Concomitant]
     Active Substance: TAMSULOSIN
  26. MYCOPHENOLATE [Concomitant]
     Active Substance: MYCOPHENOLIC ACID
     Dosage: 250 MG, BID
     Dates: start: 20170426
  27. EFFEXOR [Concomitant]
     Active Substance: VENLAFAXINE HYDROCHLORIDE
     Dosage: 75 MG, QD
     Route: 048
     Dates: start: 20170426
  28. LEVETIRACETAM. [Concomitant]
     Active Substance: LEVETIRACETAM
  29. UPTRAVI [Suspect]
     Active Substance: SELEXIPAG
     Indication: PULMONARY ARTERIAL HYPERTENSION
     Dosage: 1000 MCG, BID
     Route: 048
     Dates: start: 20160116
  30. TORSEMIDE. [Concomitant]
     Active Substance: TORSEMIDE
     Indication: PRODUCT USED FOR UNKNOWN INDICATION
  31. SODIUM BICARBONATE. [Concomitant]
     Active Substance: SODIUM BICARBONATE
     Dosage: 650 MG, BID
     Route: 048
  32. VENLAFAXINE [Concomitant]
     Active Substance: VENLAFAXINE HYDROCHLORIDE

REACTIONS (59)
  - Dyspnoea [Unknown]
  - Transfusion [Unknown]
  - Acute kidney injury [Recovered/Resolved]
  - Electric injury [Unknown]
  - Chest pain [Unknown]
  - Myalgia [Unknown]
  - Liver transplant [Unknown]
  - Scedosporium infection [Not Recovered/Not Resolved]
  - Neuropathy peripheral [Not Recovered/Not Resolved]
  - Joint range of motion decreased [Unknown]
  - Rash pruritic [Unknown]
  - Blood creatinine increased [Unknown]
  - Pneumonia [Unknown]
  - Pain [Recovered/Resolved]
  - Brain abscess [Not Recovered/Not Resolved]
  - Colonoscopy [Unknown]
  - Blood urea increased [Unknown]
  - Dialysis [Unknown]
  - Dizziness [Unknown]
  - Tinnitus [Unknown]
  - Influenza [Recovering/Resolving]
  - Muscle spasms [Recovered/Resolved]
  - Presyncope [Recovered/Resolved]
  - Biopsy colon [Unknown]
  - Seizure [Not Recovered/Not Resolved]
  - Hypoxia [Recovered/Resolved with Sequelae]
  - Osteoarthritis [Unknown]
  - Haemorrhage [Unknown]
  - Peripheral swelling [Unknown]
  - Polypectomy [Unknown]
  - Sigmoidoscopy [Unknown]
  - Arthralgia [Unknown]
  - Diarrhoea [Unknown]
  - Dizziness postural [Recovered/Resolved with Sequelae]
  - Death [Fatal]
  - Haematoma [Unknown]
  - Renal impairment [Recovered/Resolved]
  - Back pain [Recovering/Resolving]
  - Left ventricular failure [Unknown]
  - Fluid overload [Recovered/Resolved]
  - Major depression [Unknown]
  - Renal disorder [Unknown]
  - Glomerulonephritis [Unknown]
  - Aspiration joint [Unknown]
  - Electric shock [Unknown]
  - Pain in extremity [Recovered/Resolved]
  - Neck pain [Recovering/Resolving]
  - Hypertension [Not Recovered/Not Resolved]
  - Pulmonary hypertension [Not Recovered/Not Resolved]
  - Gastrointestinal haemorrhage [Recovered/Resolved]
  - Haemoglobin decreased [Unknown]
  - Hyperhidrosis [Unknown]
  - Gout [Unknown]
  - Erythema [Unknown]
  - Hypokalaemia [Unknown]
  - Gait disturbance [Unknown]
  - Headache [Unknown]
  - Joint swelling [Unknown]
  - Blood glucose increased [Unknown]

NARRATIVE: CASE EVENT DATE: 201604
